FAERS Safety Report 24729865 (Version 3)
Quarter: 2024Q4

REPORT INFORMATION
  Report Type: Spontaneous
  Country: JP (occurrence: JP)
  Receive Date: 20241213
  Receipt Date: 20241226
  Transmission Date: 20250115
  Serious: Yes (Other)
  Sender: TAKEDA
  Company Number: JP-TAKEDA-2024TJP017474

PATIENT
  Age: 8 Decade
  Sex: Female

DRUGS (2)
  1. FRUZAQLA [Suspect]
     Active Substance: FRUQUINTINIB
     Indication: Colon cancer
     Dosage: 5 MILLIGRAM
     Dates: start: 20241126, end: 20241209
  2. FRUZAQLA [Suspect]
     Active Substance: FRUQUINTINIB
     Dosage: 5 MILLIGRAM

REACTIONS (5)
  - Renal-limited thrombotic microangiopathy [Recovered/Resolved]
  - Dry mouth [Recovered/Resolved]
  - Hypertension [Recovered/Resolved]
  - Platelet count decreased [Recovered/Resolved]
  - Inappropriate schedule of product administration [Unknown]

NARRATIVE: CASE EVENT DATE: 20241210
